FAERS Safety Report 4685548-7 (Version None)
Quarter: 2005Q2

REPORT INFORMATION
  Report Type: 
  Country: None (occurrence: None)
  Receive Date: 20050608
  Receipt Date: 20050527
  Transmission Date: 20051028
  Serious: Yes (Other)
  Sender: FDA-Public Use
  Company Number: PHEH2005US06003

PATIENT
  Age: 65 Year
  Sex: Male
  Weight: 86 kg

DRUGS (13)
  1. LESCOL [Suspect]
     Indication: BLOOD CHOLESTEROL INCREASED
     Dosage: 20 MG, QD
     Route: 048
     Dates: start: 19970101, end: 20041101
  2. LESCOL [Suspect]
     Dosage: 40 MG, QD
     Route: 048
     Dates: start: 20041101, end: 20050501
  3. ALTACE [Concomitant]
     Dosage: 10 MG, QHS
  4. ZOLOFT [Concomitant]
     Dosage: 1/2 A 50 MG TABLET QOD
  5. VIAGRA [Concomitant]
     Dosage: UNK, PRN
  6. ACTOS /USA/ [Concomitant]
     Indication: DIABETES MELLITUS
     Dosage: 45 MG, QD
  7. GLUCOTROL [Concomitant]
     Indication: DIABETES MELLITUS
     Dosage: 10 MG, BID
  8. METFORMIN [Concomitant]
     Indication: DIABETES MELLITUS
     Dosage: 500 MG, BID
  9. VITAMIN E [Concomitant]
     Dosage: UNK, QD
  10. ASCORBIC ACID [Concomitant]
     Dosage: UNK, QD
  11. COREG [Concomitant]
     Indication: CARDIAC DISORDER
     Dosage: 12.5 MG, BID
  12. LASIX [Concomitant]
     Indication: FLUID RETENTION
     Dosage: 20 MG, QD
  13. FLONASE [Concomitant]
     Dosage: UNK, BID

REACTIONS (15)
  - ANGINA PECTORIS [None]
  - ATRIOVENTRICULAR BLOCK [None]
  - CARDIAC DISORDER [None]
  - CARPAL TUNNEL SYNDROME [None]
  - CHEST DISCOMFORT [None]
  - CORONARY ARTERY DISEASE [None]
  - DIABETIC NEUROPATHY [None]
  - FATIGUE [None]
  - HYPOAESTHESIA [None]
  - MUSCLE TIGHTNESS [None]
  - MYOCARDIAL INFARCTION [None]
  - PAIN [None]
  - PARAESTHESIA [None]
  - PERIPHERAL COLDNESS [None]
  - PERIPHERAL SENSORY NEUROPATHY [None]
